FAERS Safety Report 19499704 (Version 1)
Quarter: 2021Q3

REPORT INFORMATION
  Report Type: Spontaneous
  Country: NL (occurrence: NL)
  Receive Date: 20210707
  Receipt Date: 20210707
  Transmission Date: 20211014
  Serious: Yes (Hospitalization)
  Sender: FDA-Public Use
  Company Number: NL-TEVA-2021-NL-1930161

PATIENT
  Sex: Female
  Weight: 72 kg

DRUGS (3)
  1. VENLAFAXINE CAPSULE MGA  75MG / BRAND NAME NOT SPECIFIED [Suspect]
     Active Substance: VENLAFAXINE HYDROCHLORIDE
     Indication: DEPRESSION
     Dosage: MODIFIED RELEASE CAPSULE, 75 MG (MILLIGRAM), UNIT DOSE : 1 DF
     Dates: start: 202103, end: 20210525
  2. OXAZEPAM TABLET 10MG / BRAND NAME NOT SPECIFIED [Concomitant]
     Active Substance: OXAZEPAM
     Dosage: 10 MG (MILLIGRAM) , THERAPY START DATE AND END DATE : ASKU
  3. PROMETHAZINE HYDROCHLORIDE / BRAND NAME NOT SPECIFIED [Concomitant]
     Dosage: 50 MG ,THERAPY START DATE AND END DATE : ASKU

REACTIONS (3)
  - Chest discomfort [Recovered/Resolved]
  - Angina pectoris [Unknown]
  - Sinus tachycardia [Recovered/Resolved]
